FAERS Safety Report 8177528-4 (Version None)
Quarter: 2012Q1

REPORT INFORMATION
  Report Type: 
  Country: None (occurrence: None)
  Receive Date: 20120301
  Receipt Date: 20120224
  Transmission Date: 20120608
  Serious: Yes (Death, Hospitalization)
  Sender: FDA-Public Use
  Company Number: US-ACTELION-A-US2012-60334

PATIENT

DRUGS (1)
  1. TRACLEER [Suspect]
     Indication: PULMONARY ARTERIAL HYPERTENSION
     Dosage: 31.25 MG, BID
     Route: 048
     Dates: end: 20120125

REACTIONS (6)
  - RESPIRATORY FAILURE [None]
  - HYPOXIA [None]
  - BRADYCARDIA [None]
  - DEVICE RELATED INFECTION [None]
  - OXYGEN SATURATION DECREASED [None]
  - OXYGEN CONSUMPTION INCREASED [None]
